FAERS Safety Report 21303621 (Version 3)
Quarter: 2022Q4

REPORT INFORMATION
  Report Type: Spontaneous
  Country: JP (occurrence: JP)
  Receive Date: 20220907
  Receipt Date: 20221114
  Transmission Date: 20230113
  Serious: Yes (Death, Hospitalization, Other)
  Sender: FDA-Public Use
  Company Number: JP-002147023-NVSJ2022JP096150

PATIENT

DRUGS (5)
  1. RUXOLITINIB [Suspect]
     Active Substance: RUXOLITINIB
     Indication: Primary myelofibrosis
     Dosage: 20 MG, BID
     Route: 048
     Dates: start: 20200728, end: 20220803
  2. RUXOLITINIB [Suspect]
     Active Substance: RUXOLITINIB
     Dosage: 10 MG
     Route: 048
     Dates: start: 20220804, end: 20220805
  3. JADENU [Concomitant]
     Active Substance: DEFERASIROX
     Indication: Iron overload
     Dosage: 360 MG, BID
     Route: 048
     Dates: start: 20210914, end: 20220810
  4. MAGNESIUM OXIDE [Concomitant]
     Active Substance: MAGNESIUM OXIDE
     Indication: Constipation
     Dosage: 1000 MG, BID
     Route: 048
     Dates: start: 20220804, end: 20220809
  5. RABEPRAZOLE SODIUM [Concomitant]
     Active Substance: RABEPRAZOLE SODIUM
     Indication: Gastrooesophageal reflux disease
     Dosage: 10 MG, QD
     Route: 048
     Dates: end: 20220810

REACTIONS (9)
  - Acute respiratory distress syndrome [Fatal]
  - Bradycardia [Fatal]
  - Cytomegalovirus test positive [Recovering/Resolving]
  - Immune reconstitution inflammatory syndrome [Unknown]
  - Platelet count decreased [Not Recovered/Not Resolved]
  - Pneumocystis jirovecii pneumonia [Fatal]
  - Immunosuppression [Unknown]
  - Somnolence [Fatal]
  - Blood beta-D-glucan increased [Unknown]

NARRATIVE: CASE EVENT DATE: 20220803
